FAERS Safety Report 18160653 (Version 2)
Quarter: 2020Q4

REPORT INFORMATION
  Report Type: Report from Study
  Country: CA (occurrence: CA)
  Receive Date: 20200818
  Receipt Date: 20201021
  Transmission Date: 20210113
  Serious: Yes (Other)
  Sender: FDA-Public Use
  Company Number: CA-BIOGEN-2020BI00870661

PATIENT
  Age: 26 Year
  Sex: Female

DRUGS (1)
  1. TYSABRI [Suspect]
     Active Substance: NATALIZUMAB
     Indication: MULTIPLE SCLEROSIS
     Dosage: INFUSED FOR OVER 1 HOUR
     Route: 042
     Dates: start: 20180924

REACTIONS (2)
  - Precancerous cells present [Unknown]
  - Adenocarcinoma of the cervix [Unknown]

NARRATIVE: CASE EVENT DATE: 202006
